FAERS Safety Report 5689687-3 (Version None)
Quarter: 2008Q1

REPORT INFORMATION
  Report Type: 
  Country: None (occurrence: None)
  Receive Date: 20080328
  Receipt Date: 20080313
  Transmission Date: 20080703
  Serious: Yes (Other)
  Sender: FDA-Public Use
  Company Number: 2008US000804

PATIENT
  Sex: Male

DRUGS (2)
  1. AMEVIVE [Suspect]
     Indication: PSORIASIS
     Dosage: 15 MG, WEEKLY, INTRAMUSCULAR; 15 MG, WEEKLY, IV NOS
     Route: 030
     Dates: start: 20060829
  2. AMEVIVE [Suspect]
     Indication: PSORIASIS
     Dosage: 15 MG, WEEKLY, INTRAMUSCULAR; 15 MG, WEEKLY, IV NOS
     Route: 030
     Dates: start: 20080123

REACTIONS (1)
  - LABORATORY TEST ABNORMAL [None]
